FAERS Safety Report 24056685 (Version 1)
Quarter: 2024Q3

REPORT INFORMATION
  Report Type: Spontaneous
  Country: US (occurrence: US)
  Receive Date: 20240705
  Receipt Date: 20240705
  Transmission Date: 20241016
  Serious: Yes (Other)
  Sender: BRISTOL MYERS SQUIBB
  Company Number: US-BRISTOL-MYERS SQUIBB COMPANY-2024-103665

PATIENT
  Age: 84 Year
  Sex: Male
  Weight: 93 kg

DRUGS (2)
  1. ELIQUIS [Suspect]
     Active Substance: APIXABAN
     Indication: Atrial fibrillation
     Route: 048
     Dates: start: 20211221
  2. ZOLOFT [Concomitant]
     Active Substance: SERTRALINE HYDROCHLORIDE
     Indication: Product used for unknown indication
     Dosage: TAKE 0.5 TABLETS (25 MG) BY MOUTH AT BEDTIME

REACTIONS (7)
  - Atrial flutter [Unknown]
  - Acquired ATTR amyloidosis [Unknown]
  - Balance disorder [Unknown]
  - Urinary incontinence [Unknown]
  - Pericardial effusion [Unknown]
  - Chronic left ventricular failure [Unknown]
  - Fall [Unknown]

NARRATIVE: CASE EVENT DATE: 20231101
